FAERS Safety Report 14317879 (Version 1)
Quarter: 2017Q4

REPORT INFORMATION
  Report Type: Spontaneous
  Country: US (occurrence: US)
  Receive Date: 20171222
  Receipt Date: 20171222
  Transmission Date: 20180321
  Serious: No
  Sender: FDA-Public Use
  Company Number: US-WEST-WARD PHARMACEUTICALS CORP.-US-H14001-17-02253

PATIENT
  Age: 48 Year
  Sex: Female

DRUGS (7)
  1. LITHIUM CARBONATE EXTENDED RELEASE [Suspect]
     Active Substance: LITHIUM CARBONATE
     Route: 048
  2. LITHIUM CARBONATE EXTENDED RELEASE [Suspect]
     Active Substance: LITHIUM CARBONATE
     Route: 048
  3. LITHIUM CARBONATE. [Suspect]
     Active Substance: LITHIUM CARBONATE
     Route: 048
  4. LITHIUM CARBONATE. [Suspect]
     Active Substance: LITHIUM CARBONATE
     Indication: ANTIPSYCHOTIC DRUG LEVEL BELOW THERAPEUTIC
     Route: 048
     Dates: start: 201706
  5. LITHIUM CARBONATE. [Suspect]
     Active Substance: LITHIUM CARBONATE
     Route: 048
  6. LITHIUM CARBONATE EXTENDED RELEASE [Suspect]
     Active Substance: LITHIUM CARBONATE
     Indication: PRODUCT USED FOR UNKNOWN INDICATION
     Route: 048
     Dates: start: 2005
  7. LITHIUM CARBONATE. [Suspect]
     Active Substance: LITHIUM CARBONATE
     Route: 048

REACTIONS (3)
  - Antipsychotic drug level below therapeutic [Recovered/Resolved]
  - Headache [Not Recovered/Not Resolved]
  - Hypertension [Not Recovered/Not Resolved]

NARRATIVE: CASE EVENT DATE: 201705
